FAERS Safety Report 21098539 (Version 3)
Quarter: 2023Q1

REPORT INFORMATION
  Report Type: Report from Study
  Country: US (occurrence: US)
  Receive Date: 20220719
  Receipt Date: 20230124
  Transmission Date: 20230417
  Serious: Yes (Other)
  Sender: FDA-Public Use
  Company Number: US-ABBVIE-22K-163-4471970-00

PATIENT
  Sex: Female

DRUGS (3)
  1. HUMIRA [Suspect]
     Active Substance: ADALIMUMAB
     Indication: Colitis ulcerative
     Dosage: CITRATE FREE
     Route: 058
     Dates: start: 20220203
  2. HUMIRA [Suspect]
     Active Substance: ADALIMUMAB
     Dosage: CITRATE FREE ?EVENT ONSET DATE OF ADVERSE FOOD REACTION, UNEVALUABLE EVENT, DRUG EFFECT INCOMPLET...
     Route: 058
  3. MODERNA COVID-19 VACCINE [Concomitant]
     Active Substance: ELASOMERAN
     Indication: COVID-19 immunisation
     Dosage: ONE IN ONCE
     Route: 030

REACTIONS (6)
  - Pituitary tumour [Unknown]
  - Cushing^s syndrome [Unknown]
  - Adverse food reaction [Unknown]
  - Frequent bowel movements [Not Recovered/Not Resolved]
  - Unevaluable event [Unknown]
  - Therapeutic product effect incomplete [Unknown]
